FAERS Safety Report 7726334-0 (Version None)
Quarter: 2011Q3

REPORT INFORMATION
  Report Type: 
  Country: None (occurrence: None)
  Receive Date: 20110902
  Receipt Date: 20110831
  Transmission Date: 20111222
  Serious: Yes (Other)
  Sender: FDA-Public Use
  Company Number: JP-PFIZER INC-2011203796

PATIENT

DRUGS (1)
  1. VARENICLINE TARTRATE [Suspect]
     Route: 048

REACTIONS (2)
  - HAEMATOCHEZIA [None]
  - HAEMATEMESIS [None]
